FAERS Safety Report 13758845 (Version 1)
Quarter: 2017Q3

REPORT INFORMATION
  Report Type: Report from Study
  Country: IT (occurrence: IT)
  Receive Date: 20170717
  Receipt Date: 20170717
  Transmission Date: 20171127
  Serious: Yes (Other)
  Sender: FDA-Public Use
  Company Number: IT-ROCHE-500749

PATIENT

DRUGS (3)
  1. GEMZAR [Suspect]
     Active Substance: GEMCITABINE HYDROCHLORIDE
     Indication: NEOPLASM
     Dosage: DOSE AT 10 MG/M2/MIN IN ESCALATING DURATIONS OF INFUSION ON DAYS 1 AND 8 EVERY 21 DAYS
     Route: 065
  2. GEMZAR [Suspect]
     Active Substance: GEMCITABINE HYDROCHLORIDE
     Dosage: DOSE ESCALATED
     Route: 065
  3. CAPECITABINE. [Suspect]
     Active Substance: CAPECITABINE
     Indication: NEOPLASM
     Dosage: TAKEN FOR 14 CONSECUTIVE DAYS FOLLOWED BY 1 WEEK REST, FORM: FILM COATED TABLETS
     Route: 048

REACTIONS (8)
  - Anaemia [Unknown]
  - Fatigue [Recovered/Resolved]
  - Malignant neoplasm progression [Unknown]
  - Neutropenia [Unknown]
  - Leukopenia [Unknown]
  - Hepatotoxicity [Recovered/Resolved]
  - Stomatitis [Recovered/Resolved]
  - Thrombocytopenia [Unknown]
